FAERS Safety Report 4307200-X (Version None)
Quarter: 2004Q1

REPORT INFORMATION
  Report Type: 
  Country: None (occurrence: None)
  Receive Date: 20040225
  Receipt Date: 20040211
  Transmission Date: 20041129
  Serious: Yes (Life-Threatening, Hospitalization, Other)
  Sender: FDA-Public Use
  Company Number: 235336

PATIENT
  Age: 10 Year
  Sex: Female
  Weight: 24.1 kg

DRUGS (1)
  1. NORDITROPIN SIMPLEXX (SOMATROPTIN) SOLUTION FOR INJECTION, 3.3 MG/ML [Suspect]
     Indication: GROWTH HORMONE DEFICIENCY
     Dosage: 0.8 MG, QD, SUBCUTANEOUS
     Route: 058
     Dates: start: 20020516, end: 20040209

REACTIONS (6)
  - ALPHA HAEMOLYTIC STREPTOCOCCAL INFECTION [None]
  - EYE OEDEMA [None]
  - HEADACHE [None]
  - PHARYNGOLARYNGEAL PAIN [None]
  - PYREXIA [None]
  - RESPIRATORY DISTRESS [None]
